FAERS Safety Report 8834557 (Version 1)
Quarter: 2012Q4

REPORT INFORMATION
  Report Type: 
  Country: ZA (occurrence: ZA)
  Receive Date: 20121010
  Receipt Date: 20121010
  Transmission Date: 20130627
  Serious: Yes (Hospitalization)
  Sender: FDA-Public Use
  Company Number: ZA-ELI_LILLY_AND_COMPANY-ZA201210000558

PATIENT
  Sex: Male

DRUGS (2)
  1. HUMALOG 25% LISPRO, 75% NPL [Suspect]
     Indication: DIABETES MELLITUS
     Dosage: 50 u, each morning
     Route: 058
     Dates: start: 201109
  2. HUMALOG 25% LISPRO, 75% NPL [Suspect]
     Dosage: 30 u, each evening
     Route: 058
     Dates: start: 201109

REACTIONS (1)
  - Depression [Unknown]
